FAERS Safety Report 5383634-X (Version None)
Quarter: 2007Q3

REPORT INFORMATION
  Report Type: 
  Country: None (occurrence: None)
  Receive Date: 20070706
  Receipt Date: 20070625
  Transmission Date: 20080115
  Serious: Yes (Death)
  Sender: FDA-Public Use
  Company Number: 2007BI010500

PATIENT
  Age: 65 Year
  Sex: Female

DRUGS (1)
  1. AVONEX [Suspect]
     Indication: MULTIPLE SCLEROSIS
     Dosage: 30 UG;QW; IM
     Route: 030
     Dates: start: 20030127, end: 20070203

REACTIONS (4)
  - CERVICAL MYELOPATHY [None]
  - INFLUENZA LIKE ILLNESS [None]
  - QUADRIPLEGIA [None]
  - RESPIRATORY FAILURE [None]
